FAERS Safety Report 12736173 (Version 2)
Quarter: 2016Q3

REPORT INFORMATION
  Report Type: Spontaneous
  Country: JP (occurrence: JP)
  Receive Date: 20160912
  Receipt Date: 20160930
  Transmission Date: 20161109
  Serious: Yes (Other)
  Sender: FDA-Public Use
  Company Number: JP-JNJFOC-20160903184

PATIENT
  Age: 85 Year
  Sex: Female

DRUGS (5)
  1. GRAMALIL [Concomitant]
     Active Substance: TIAPRIDE HYDROCHLORIDE
     Route: 048
  2. DEPAS [Concomitant]
     Active Substance: ETIZOLAM
     Route: 048
  3. REMINYL [Suspect]
     Active Substance: GALANTAMINE
     Indication: DEMENTIA ALZHEIMER^S TYPE
     Route: 048
     Dates: start: 201212, end: 20160804
  4. AMLODIPINE BESILATE [Concomitant]
     Active Substance: AMLODIPINE BESYLATE
     Route: 048
  5. CELECOX [Concomitant]
     Active Substance: CELECOXIB
     Route: 048

REACTIONS (2)
  - Blood potassium decreased [Unknown]
  - Pain [Unknown]

NARRATIVE: CASE EVENT DATE: 20160803
